FAERS Safety Report 7331572-5 (Version None)
Quarter: 2011Q1

REPORT INFORMATION
  Report Type: 
  Country: None (occurrence: None)
  Receive Date: 20110228
  Receipt Date: 20110228
  Transmission Date: 20110831
  Serious: Yes (Hospitalization, Other)
  Sender: FDA-Public Use
  Company Number: None

PATIENT
  Age: 17 Year
  Sex: Female
  Weight: 54.4316 kg

DRUGS (1)
  1. MINOCIN [Suspect]
     Indication: ACNE
     Dates: start: 20101010, end: 20101208

REACTIONS (12)
  - DECREASED APPETITE [None]
  - BACK PAIN [None]
  - NECK PAIN [None]
  - EDUCATIONAL PROBLEM [None]
  - PHOTOPHOBIA [None]
  - WEIGHT DECREASED [None]
  - OPTIC NERVE SHEATH HAEMORRHAGE [None]
  - FRUSTRATION [None]
  - PERSONALITY CHANGE [None]
  - EYE PAIN [None]
  - INTRACRANIAL PRESSURE INCREASED [None]
  - NAUSEA [None]
